FAERS Safety Report 8847939 (Version 1)
Quarter: 2012Q4

REPORT INFORMATION
  Report Type: 
  Country: US (occurrence: US)
  Receive Date: 20121018
  Receipt Date: 20121018
  Transmission Date: 20130627
  Serious: Yes (Death)
  Sender: FDA-Public Use
  Company Number: US-ROCHE-716181

PATIENT
  Sex: Female

DRUGS (6)
  1. HERCEPTIN [Suspect]
     Indication: BREAST CANCER FEMALE
     Route: 042
  2. NAVELBINE [Suspect]
     Indication: BREAST CANCER METASTATIC
     Route: 065
  3. CARBOPLATIN [Suspect]
     Indication: BREAST CANCER METASTATIC
     Route: 065
  4. ABRAXANE [Suspect]
     Indication: BREAST CANCER METASTATIC
     Route: 065
  5. GEMZAR [Suspect]
     Indication: BREAST CANCER METASTATIC
     Route: 065
  6. GEMZAR [Suspect]
     Route: 065

REACTIONS (2)
  - Death [Fatal]
  - Tumour marker increased [Unknown]
